FAERS Safety Report 7221467-X (Version None)
Quarter: 2011Q1

REPORT INFORMATION
  Report Type: 
  Country: None (occurrence: None)
  Receive Date: 20110112
  Receipt Date: 20101229
  Transmission Date: 20110831
  Serious: Yes (Other)
  Sender: FDA-Public Use
  Company Number: PHHY2010DE87506

PATIENT
  Sex: Male

DRUGS (1)
  1. AFINITOR [Suspect]
     Indication: RENAL CELL CARCINOMA
     Dosage: 10 MG,DAILY
     Route: 048
     Dates: start: 20101108, end: 20101216

REACTIONS (2)
  - CEREBRAL ISCHAEMIA [None]
  - CEREBRAL HAEMORRHAGE [None]
